FAERS Safety Report 4886875-0 (Version None)
Quarter: 2006Q1

REPORT INFORMATION
  Report Type: 
  Country: None (occurrence: None)
  Receive Date: 20060119
  Receipt Date: 20060103
  Transmission Date: 20060701
  Serious: Yes (Hospitalization)
  Sender: FDA-Public Use
  Company Number: 2006004033

PATIENT
  Age: 14 Year
  Sex: Male

DRUGS (1)
  1. GENOTROPIN [Suspect]
     Indication: CYSTINURIA
     Dates: start: 19971213

REACTIONS (3)
  - BENIGN INTRACRANIAL HYPERTENSION [None]
  - MIGRAINE [None]
  - VOMITING [None]
